FAERS Safety Report 8139883-0 (Version None)
Quarter: 2012Q1

REPORT INFORMATION
  Report Type: 
  Country: None (occurrence: None)
  Receive Date: 20120215
  Receipt Date: 20120209
  Transmission Date: 20120608
  Serious: Yes (Death, Other)
  Sender: FDA-Public Use
  Company Number: US-CELGENEUS-163-21880-11120498

PATIENT
  Sex: Male

DRUGS (7)
  1. REVLIMID [Suspect]
     Indication: MULTIPLE MYELOMA
     Dosage: 15 MILLIGRAM
     Route: 048
     Dates: start: 20110824, end: 20110101
  2. MELPHALAN HYDROCHLORIDE [Concomitant]
     Dosage: 8 MILLIGRAM
     Route: 048
     Dates: start: 20111201, end: 20111204
  3. PREDNISONE TAB [Concomitant]
     Dosage: 100 MILLIGRAM
     Route: 048
     Dates: start: 20111201, end: 20111204
  4. REVLIMID [Suspect]
     Dosage: 2.5 MILLIGRAM
     Route: 048
     Dates: start: 20111130, end: 20111214
  5. VELCADE [Concomitant]
     Dosage: 1.9 MILLIGRAM
     Route: 041
     Dates: start: 20101210, end: 20111102
  6. REVLIMID [Suspect]
     Dosage: 10 MILLIGRAM
     Route: 048
     Dates: start: 20110901, end: 20110101
  7. DECADRON [Concomitant]
     Dosage: 40 MILLIGRAM
     Route: 048
     Dates: start: 20101210, end: 20111102

REACTIONS (4)
  - PLATELET COUNT DECREASED [None]
  - HAEMOGLOBIN DECREASED [None]
  - DEATH [None]
  - NEUTROPHIL COUNT DECREASED [None]
